FAERS Safety Report 9266713 (Version 1)
Quarter: 2013Q2

REPORT INFORMATION
  Report Type: Spontaneous
  Country: GB (occurrence: GB)
  Receive Date: 20130502
  Receipt Date: 20130502
  Transmission Date: 20140414
  Serious: Yes (Hospitalization, Other)
  Sender: FDA-Public Use
  Company Number: GB-PFIZER INC-2013132980

PATIENT
  Age: 29 Year
  Sex: Female

DRUGS (5)
  1. MORPHINE SULFATE [Suspect]
     Dosage: UNK
     Route: 065
  2. ABILIFY [Suspect]
     Indication: SCHIZOAFFECTIVE DISORDER
     Dosage: 10 MG, 1X/DAY
     Route: 048
     Dates: start: 20130329, end: 20130331
  3. ABILIFY [Suspect]
     Dosage: 5 MG, 1X/DAY
     Route: 048
     Dates: start: 201303, end: 20130328
  4. PROPANOLOL [Concomitant]
     Dosage: UNK
  5. CLONAZEPAM [Concomitant]
     Dosage: UNK

REACTIONS (8)
  - Cardiac failure [Recovered/Resolved]
  - Anaphylactic reaction [Recovered/Resolved]
  - Dystonia [Unknown]
  - Speech disorder [Unknown]
  - Suicidal ideation [Not Recovered/Not Resolved]
  - Feeling abnormal [Not Recovered/Not Resolved]
  - Fatigue [Not Recovered/Not Resolved]
  - Insomnia [Unknown]
